FAERS Safety Report 6635639-6 (Version None)
Quarter: 2010Q1

REPORT INFORMATION
  Report Type: 
  Country: None (occurrence: None)
  Receive Date: 20100312
  Receipt Date: 20100312
  Transmission Date: 20100710
  Serious: Yes (Hospitalization)
  Sender: FDA-Public Use
  Company Number: None

PATIENT
  Age: 42 Year
  Sex: Female
  Weight: 77.56 kg

DRUGS (2)
  1. ACETAMINOPHEN [Suspect]
     Indication: EAR PAIN
     Dosage: TAB PRN PO
     Route: 048
     Dates: start: 20090624, end: 20090624
  2. TRAMADOL HCL [Suspect]
     Indication: EAR PAIN
     Dosage: 50 MG PRN PO
     Route: 048
     Dates: start: 20071212

REACTIONS (4)
  - DYSPHAGIA [None]
  - DYSPNOEA [None]
  - ERUCTATION [None]
  - LOCAL SWELLING [None]
